FAERS Safety Report 18238695 (Version 8)
Quarter: 2021Q1

REPORT INFORMATION
  Report Type: Report from Study
  Country: JP (occurrence: JP)
  Receive Date: 20200907
  Receipt Date: 20210220
  Transmission Date: 20210419
  Serious: Yes (Other)
  Sender: FDA-Public Use
  Company Number: NVSJ2020JP005884

PATIENT
  Age: 15 Month
  Sex: Female
  Weight: 7.6 kg

DRUGS (6)
  1. ZOLGENSMA [Suspect]
     Active Substance: ONASEMNOGENE ABEPARVOVEC-XIOI
     Indication: SPINAL MUSCULAR ATROPHY
     Dosage: 44 ML (1.1 X E14VG/KG)
     Route: 041
     Dates: start: 20200609
  2. PREDONINE [Concomitant]
     Active Substance: PREDNISOLONE
     Dosage: 1 MG/KG
     Route: 048
     Dates: start: 20200616, end: 20200902
  3. PREDONINE [Concomitant]
     Active Substance: PREDNISOLONE
     Dosage: 0.5 MG/KG
     Route: 048
     Dates: start: 20200903
  4. PREDONINE [Concomitant]
     Active Substance: PREDNISOLONE
     Indication: PRODUCT USED FOR UNKNOWN INDICATION
     Dosage: 1 MG/KG
     Route: 048
     Dates: start: 20200608, end: 20200611
  5. PREDNISOLONE. [Concomitant]
     Active Substance: PREDNISOLONE
     Indication: PRODUCT USED FOR UNKNOWN INDICATION
     Dosage: 1 MG/KG
     Route: 065
     Dates: start: 20200508, end: 20200930
  6. PREDONINE [Concomitant]
     Active Substance: PREDNISOLONE
     Indication: PRODUCT USED FOR UNKNOWN INDICATION
     Dosage: 1 MG/KG
     Route: 042
     Dates: start: 20200612, end: 20200615

REACTIONS (11)
  - Thrombocytopenia [Recovered/Resolved]
  - Alanine aminotransferase increased [Unknown]
  - Alanine aminotransferase increased [Recovered/Resolved]
  - Upper respiratory tract infection [Recovered/Resolved]
  - Aspartate aminotransferase increased [Recovered/Resolved]
  - Pyrexia [Recovered/Resolved]
  - Liver disorder [Recovered/Resolved]
  - Hepatic function abnormal [Recovered/Resolved]
  - Aspartate aminotransferase increased [Unknown]
  - Asthenia [Unknown]
  - Pyrexia [Recovered/Resolved]

NARRATIVE: CASE EVENT DATE: 20200611
